FAERS Safety Report 14193540 (Version 3)
Quarter: 2017Q4

REPORT INFORMATION
  Report Type: Report from Study
  Country: US (occurrence: US)
  Receive Date: 20171116
  Receipt Date: 20171206
  Transmission Date: 20180321
  Serious: No
  Sender: FDA-Public Use
  Company Number: PHEH2017US037040

PATIENT
  Sex: Female
  Weight: 65.86 kg

DRUGS (1)
  1. COSENTYX [Suspect]
     Active Substance: SECUKINUMAB
     Indication: PSORIASIS
     Dosage: 300 MG, QW
     Route: 058

REACTIONS (4)
  - Heart rate decreased [Unknown]
  - Palpitations [Not Recovered/Not Resolved]
  - Anxiety [Unknown]
  - Heart rate increased [Unknown]
